FAERS Safety Report 20189956 (Version 2)
Quarter: 2022Q2

REPORT INFORMATION
  Report Type: Spontaneous
  Country: US (occurrence: US)
  Receive Date: 20211215
  Receipt Date: 20220603
  Transmission Date: 20220721
  Serious: Yes (Other)
  Sender: FDA-Public Use
  Company Number: US-GILEAD-2021-0560279

PATIENT
  Age: 59 Year
  Sex: Male

DRUGS (1)
  1. VIREAD [Suspect]
     Active Substance: TENOFOVIR DISOPROXIL FUMARATE
     Indication: HIV infection
     Dosage: UNK
     Route: 048
     Dates: start: 20090101, end: 20181231

REACTIONS (5)
  - Chronic kidney disease [Not Recovered/Not Resolved]
  - Osteoporosis [Unknown]
  - Renal failure [Unknown]
  - Bone density decreased [Unknown]
  - Tooth loss [Unknown]

NARRATIVE: CASE EVENT DATE: 20170101
